FAERS Safety Report 5397395-1 (Version None)
Quarter: 2007Q3

REPORT INFORMATION
  Report Type: 
  Country: None (occurrence: None)
  Receive Date: 20070726
  Receipt Date: 20070720
  Transmission Date: 20080115
  Serious: Yes (Hospitalization, Other)
  Sender: FDA-Public Use
  Company Number: PHEH2007US08993

PATIENT
  Age: 90 Year
  Sex: Female
  Weight: 59.863 kg

DRUGS (2)
  1. ZELNORM [Suspect]
     Indication: IRRITABLE BOWEL SYNDROME
     Dosage: UNK, UNK
     Dates: start: 20040524, end: 20070321
  2. NITROGLYCERIN [Suspect]
     Dosage: ^2^ AT HOSPITAL (NO OTHER DETAILS SPECIFIED)
     Route: 048
     Dates: start: 20070112, end: 20070112

REACTIONS (13)
  - ABDOMINAL PAIN [None]
  - ABDOMINAL PAIN UPPER [None]
  - CARDIAC FLUTTER [None]
  - CARDIOVASCULAR DISORDER [None]
  - CHEST DISCOMFORT [None]
  - CHEST PAIN [None]
  - CONSTIPATION [None]
  - DELIRIUM [None]
  - DIARRHOEA [None]
  - DRUG INTERACTION [None]
  - HALLUCINATION [None]
  - IRRITABLE BOWEL SYNDROME [None]
  - OVERDOSE [None]
